FAERS Safety Report 8668120 (Version 5)
Quarter: 2012Q4

REPORT INFORMATION
  Report Type: 
  Country: US (occurrence: US)
  Receive Date: 20120717
  Receipt Date: 20121019
  Transmission Date: 20130627
  Serious: Yes (Hospitalization)
  Sender: FDA-Public Use
  Company Number: US-ACTELION-A-NJ2012-65204

PATIENT
  Age: 53 Year
  Sex: Female

DRUGS (1)
  1. VELETRI [Suspect]
     Indication: PULMONARY ARTERIAL HYPERTENSION
     Dosage: 25 ng/kg, per min
     Route: 041
     Dates: start: 20120207

REACTIONS (10)
  - Infection [Unknown]
  - Erythema [Unknown]
  - Urinary tract infection [Recovered/Resolved]
  - Atrial fibrillation [Recovering/Resolving]
  - Cardioversion [Recovering/Resolving]
  - Fluid overload [Unknown]
  - Ascites [Recovering/Resolving]
  - Paracentesis [Recovering/Resolving]
  - Right ventricular failure [Recovering/Resolving]
  - Fatigue [Unknown]
